FAERS Safety Report 4951120-4 (Version None)
Quarter: 2006Q1

REPORT INFORMATION
  Report Type: 
  Country: None (occurrence: None)
  Receive Date: 20060322
  Receipt Date: 20050419
  Transmission Date: 20060701
  Serious: Yes (Hospitalization)
  Sender: FDA-Public Use
  Company Number: US-MERCK-0504USA03813

PATIENT
  Age: 57 Year
  Sex: Female
  Weight: 136 kg

DRUGS (1)
  1. VIOXX [Suspect]
     Indication: ARTHRITIS
     Route: 048
     Dates: start: 20010612, end: 20040901

REACTIONS (5)
  - BLOOD DISORDER [None]
  - BRONCHITIS [None]
  - DEEP VEIN THROMBOSIS [None]
  - THROMBOSIS [None]
  - WOUND [None]
